FAERS Safety Report 11200739 (Version 2)
Quarter: 2015Q3

REPORT INFORMATION
  Report Type: Spontaneous
  Country: US (occurrence: US)
  Receive Date: 20150618
  Receipt Date: 20150706
  Transmission Date: 20151125
  Serious: Yes (Hospitalization)
  Sender: FDA-Public Use
  Company Number: PHHY2015US068891

PATIENT
  Age: 59 Year
  Sex: Male

DRUGS (1)
  1. METOPROLOL [Suspect]
     Active Substance: METOPROLOL
     Indication: PRODUCT USED FOR UNKNOWN INDICATION
     Dosage: 75 MG/KG,  (7.5 GM)
     Route: 048

REACTIONS (19)
  - Atrial fibrillation [Recovered/Resolved]
  - Hypotension [Recovered/Resolved]
  - Pulseless electrical activity [Recovered/Resolved]
  - Drug level increased [Unknown]
  - Overdose [Recovered/Resolved]
  - Bradycardia [Recovered/Resolved]
  - Hypomagnesaemia [Recovered/Resolved]
  - Cardiac arrest [Recovered/Resolved]
  - Cardiogenic shock [Recovered/Resolved]
  - Pulse abnormal [Recovered/Resolved]
  - Hypokalaemia [Recovered/Resolved]
  - Torsade de pointes [Recovered/Resolved]
  - Mental disorder [Recovered/Resolved]
  - Hyperhidrosis [Recovered/Resolved]
  - Hypokinesia [Recovered/Resolved]
  - Cyanosis [Recovered/Resolved]
  - Hyperglycaemia [Recovered/Resolved]
  - Disorientation [Recovered/Resolved]
  - Vomiting [Recovered/Resolved]
